FAERS Safety Report 5269850-6 (Version None)
Quarter: 2007Q1

REPORT INFORMATION
  Report Type: 
  Country: None (occurrence: None)
  Receive Date: 20070320
  Receipt Date: 20070317
  Transmission Date: 20070707
  Serious: Yes (Hospitalization)
  Sender: FDA-Public Use
  Company Number: IN-GLAXOSMITHKLINE-A0643588A

PATIENT
  Age: 67 Year
  Sex: Female
  Weight: 55 kg

DRUGS (6)
  1. LAPATINIB [Suspect]
     Indication: BREAST CANCER
     Dosage: 1500MG PER DAY
     Route: 048
     Dates: start: 20070127
  2. AMLODIPINE [Concomitant]
     Indication: HYPERTENSION
     Dosage: 5MG PER DAY
     Route: 048
     Dates: start: 20050101
  3. CEFIXIME CHEWABLE [Concomitant]
     Indication: INFECTION
     Dosage: 200MG TWICE PER DAY
     Route: 048
     Dates: start: 20070302, end: 20070308
  4. DICLOFENAC SODIUM [Concomitant]
     Indication: PAIN
     Route: 048
     Dates: start: 20070302, end: 20070308
  5. ACETAMINOPHEN [Concomitant]
     Indication: PAIN
     Route: 048
     Dates: start: 20070302, end: 20070308
  6. MULTI-VITAMIN [Concomitant]
     Route: 048
     Dates: start: 20070302, end: 20070308

REACTIONS (2)
  - ABDOMINAL PAIN [None]
  - DIARRHOEA [None]
